FAERS Safety Report 12060601 (Version 2)
Quarter: 2016Q1

REPORT INFORMATION
  Report Type: Spontaneous
  Country: US (occurrence: US)
  Receive Date: 20160210
  Receipt Date: 20160211
  Transmission Date: 20160526
  Serious: Yes (Death)
  Sender: FDA-Public Use
  Company Number: US-PFIZER INC-2016005771

PATIENT
  Age: 53 Year
  Sex: Female
  Weight: 63 kg

DRUGS (8)
  1. MORPHINE SULFATE. [Concomitant]
     Active Substance: MORPHINE SULFATE
     Indication: PAIN
     Dosage: 15 MG, 2X/DAY (EVERY 12 HOURS)
     Route: 048
     Dates: start: 20160121, end: 20160125
  2. LORAZEPAM. [Concomitant]
     Active Substance: LORAZEPAM
     Indication: SLEEP DISORDER
     Dosage: 1 MG, 1X/DAY
     Dates: start: 20160115, end: 20160125
  3. LORAZEPAM. [Concomitant]
     Active Substance: LORAZEPAM
     Indication: ANXIETY
  4. XALKORI [Suspect]
     Active Substance: CRIZOTINIB
     Indication: NASOPHARYNGEAL CANCER
     Dosage: 250 MG, 2X/DAY
     Route: 048
     Dates: start: 20151203, end: 201601
  5. SALINE ORAL OTC [Concomitant]
     Active Substance: SODIUM CHLORIDE
     Dosage: UNK
     Route: 045
  6. MELATONIN [Concomitant]
     Active Substance: MELATONIN
     Dosage: UNK
  7. LORAZEPAM. [Concomitant]
     Active Substance: LORAZEPAM
     Indication: NAUSEA
  8. OXYCODONE [Concomitant]
     Active Substance: OXYCODONE
     Indication: BREAKTHROUGH PAIN
     Dosage: 10 MG, AS NEEDED (ONCE DAILY)
     Dates: end: 20160125

REACTIONS (4)
  - Hepatic failure [Fatal]
  - Product use issue [Unknown]
  - Nasopharyngeal cancer [Fatal]
  - Disease progression [Fatal]
